FAERS Safety Report 24283997 (Version 1)
Quarter: 2024Q3

REPORT INFORMATION
  Report Type: Spontaneous
  Country: US (occurrence: US)
  Receive Date: 20240905
  Receipt Date: 20240905
  Transmission Date: 20241017
  Serious: No
  Sender: NOVITIUM PHARMA
  Company Number: US-NOVITIUMPHARMA-2024USNVP01761

PATIENT
  Age: 81 Year
  Sex: Female
  Weight: 180 kg

DRUGS (7)
  1. DAPSONE [Suspect]
     Active Substance: DAPSONE
     Indication: Mucous membrane pemphigoid
     Dates: start: 20240715
  2. DAPSONE [Suspect]
     Active Substance: DAPSONE
     Dates: start: 20240722
  3. DAPSONE [Suspect]
     Active Substance: DAPSONE
     Dates: start: 20240729
  4. DAPSONE [Suspect]
     Active Substance: DAPSONE
     Dates: start: 20240805
  5. DAPSONE [Suspect]
     Active Substance: DAPSONE
     Dosage: DOSE REDUCED
     Dates: start: 20240817
  6. DAPSONE [Suspect]
     Active Substance: DAPSONE
     Dates: start: 20240822
  7. SYNTHROID [Concomitant]
     Active Substance: LEVOTHYROXINE SODIUM
     Indication: Product used for unknown indication

REACTIONS (5)
  - Blood glucose increased [Recovered/Resolved]
  - Fatigue [Recovering/Resolving]
  - Dyspnoea exertional [Recovering/Resolving]
  - Blood pressure increased [Unknown]
  - Heart rate increased [Recovering/Resolving]

NARRATIVE: CASE EVENT DATE: 20240729
